FAERS Safety Report 13937037 (Version 4)
Quarter: 2018Q2

REPORT INFORMATION
  Report Type: Report from Study
  Country: US (occurrence: US)
  Receive Date: 20170905
  Receipt Date: 20180403
  Transmission Date: 20180711
  Serious: Yes (Other)
  Sender: FDA-Public Use
  Company Number: PHEH2017US027693

PATIENT
  Age: 59 Year
  Sex: Female
  Weight: 104.31 kg

DRUGS (2)
  1. GLATOPA [Suspect]
     Active Substance: GLATIRAMER ACETATE
     Indication: MULTIPLE SCLEROSIS
     Dosage: 20 MG, QD (ROTATES INJECTION SITES)
     Route: 058
     Dates: start: 20170821
  2. XANAX [Concomitant]
     Active Substance: ALPRAZOLAM
     Indication: PRODUCT USED FOR UNKNOWN INDICATION
     Route: 065

REACTIONS (5)
  - Glaucoma [Not Recovered/Not Resolved]
  - Contusion [Not Recovered/Not Resolved]
  - Weight increased [Not Recovered/Not Resolved]
  - Visual impairment [Unknown]
  - Haemorrhage [Not Recovered/Not Resolved]

NARRATIVE: CASE EVENT DATE: 20170826
